FAERS Safety Report 18930597 (Version 1)
Quarter: 2021Q1

REPORT INFORMATION
  Report Type: Spontaneous
  Country: FR (occurrence: FR)
  Receive Date: 20210224
  Receipt Date: 20210224
  Transmission Date: 20210420
  Serious: Yes (Hospitalization)
  Sender: FDA-Public Use
  Company Number: FR-SUN PHARMACEUTICAL INDUSTRIES LTD-2021RR-282442

PATIENT
  Age: 83 Year
  Sex: Male

DRUGS (13)
  1. METFORMINE [Concomitant]
     Active Substance: METFORMIN HYDROCHLORIDE
     Indication: TYPE 2 DIABETES MELLITUS
     Dosage: 1000 MILLIGRAM, DAILY, 1?0?1
     Route: 048
     Dates: start: 20170301
  2. CIPROFLOXACINE [CIPROFLOXACIN HYDROCHLORIDE] [Suspect]
     Active Substance: CIPROFLOXACIN HYDROCHLORIDE
     Indication: BACTERIAL COLITIS
     Dosage: 1000 MILLIGRAM, DAILY
     Route: 048
     Dates: start: 20210125, end: 20210125
  3. RYTHMODAN 250 MG A LIBERATION PROLONGEE, COMPRIME ENROBE [Concomitant]
     Indication: HYPERTENSION
     Dosage: 500 MILLIGRAM, DAILY, 1?0?1
     Route: 048
     Dates: start: 20170301
  4. INIPOMP [Concomitant]
     Active Substance: PANTOPRAZOLE SODIUM
     Indication: GASTRIC ULCER
     Dosage: 20 MILLIGRAM, DAILY
     Route: 048
     Dates: start: 20170301
  5. AZITHROMYCINE SANDOZ 250 MG, COMPRIME PELLICULE [Suspect]
     Active Substance: AZITHROMYCIN
     Indication: BACTERIAL COLITIS
     Dosage: 250 MILLIGRAM, DAILY
     Route: 048
     Dates: start: 20210125, end: 20210127
  6. ATORVASTATIN [Suspect]
     Active Substance: ATORVASTATIN
     Indication: DYSLIPIDAEMIA
     Dosage: 40 MILLIGRAM, DAILY, 0?0?1
     Route: 048
     Dates: start: 201703
  7. SERESTA 10 MG, COMPRIME [Concomitant]
     Active Substance: OXAZEPAM
     Indication: ANXIETY
     Dosage: 10 MILLIGRAM, DAILY, 0?0?1
     Route: 048
     Dates: start: 20170301
  8. LIPANTHYL 145 MG, COMPRIME PELLICULE [Concomitant]
     Active Substance: FENOFIBRATE
     Indication: DYSLIPIDAEMIA
     Dosage: 145 MILLIGRAM, DAILY
     Route: 048
     Dates: start: 20170301
  9. KARDEGIC [Concomitant]
     Active Substance: ASPIRIN DL-LYSINE
     Indication: CEREBROVASCULAR ACCIDENT PROPHYLAXIS
     Dosage: 75 MILLIGRAM, DAILY
     Route: 048
     Dates: start: 20180501
  10. AZITHROMYCINE SANDOZ 250 MG, COMPRIME PELLICULE [Suspect]
     Active Substance: AZITHROMYCIN
     Dosage: 250 MILLIGRAM
     Route: 048
     Dates: start: 20210130, end: 20210201
  11. ESIDREX [Concomitant]
     Active Substance: HYDROCHLOROTHIAZIDE
     Indication: HYPERTENSION
     Dosage: 25 MILLIGRAM, DAILY, 1?0?0
     Route: 048
     Dates: start: 20180501, end: 20210126
  12. PREVISCAN 20 MG, COMPRIME SECABLE [Concomitant]
     Active Substance: FLUINDIONE
     Indication: THROMBOSIS PROPHYLAXIS
     Dosage: 10 MILLIGRAM, DAILY, 0?0?1/2
     Route: 048
     Dates: start: 20170301
  13. ZOLOFT [Concomitant]
     Active Substance: SERTRALINE HYDROCHLORIDE
     Indication: DEPRESSION
     Dosage: 50 MILLIGRAM, DAILY, 1?0?0
     Route: 048
     Dates: start: 20170301

REACTIONS (1)
  - Pancreatitis acute [Recovered/Resolved]

NARRATIVE: CASE EVENT DATE: 20210130
